FAERS Safety Report 20676487 (Version 1)
Quarter: 2022Q2

REPORT INFORMATION
  Report Type: Report from Study
  Country: JP (occurrence: JP)
  Receive Date: 20220405
  Receipt Date: 20220405
  Transmission Date: 20220721
  Serious: Yes (Other)
  Sender: FDA-Public Use
  Company Number: JP-BRISTOL-MYERS SQUIBB COMPANY-2022-015139

PATIENT
  Age: 62 Year
  Sex: Male
  Weight: 64.9 kg

DRUGS (15)
  1. IPILIMUMAB [Suspect]
     Active Substance: IPILIMUMAB
     Indication: Metastatic renal cell carcinoma
     Route: 065
     Dates: start: 20210413, end: 20210413
  2. IPILIMUMAB [Suspect]
     Active Substance: IPILIMUMAB
     Route: 065
     Dates: start: 20210507, end: 20210507
  3. IPILIMUMAB [Suspect]
     Active Substance: IPILIMUMAB
     Route: 065
     Dates: start: 20210528, end: 20210528
  4. IPILIMUMAB [Suspect]
     Active Substance: IPILIMUMAB
     Route: 065
     Dates: start: 20210622, end: 20210622
  5. NIVOLUMAB [Suspect]
     Active Substance: NIVOLUMAB
     Indication: Metastatic renal cell carcinoma
     Route: 065
     Dates: start: 20210413, end: 20210413
  6. NIVOLUMAB [Suspect]
     Active Substance: NIVOLUMAB
     Route: 065
     Dates: start: 20210507, end: 20210507
  7. NIVOLUMAB [Suspect]
     Active Substance: NIVOLUMAB
     Route: 065
     Dates: start: 20210528, end: 20210528
  8. NIVOLUMAB [Suspect]
     Active Substance: NIVOLUMAB
     Route: 065
     Dates: start: 20210622, end: 20210622
  9. NIVOLUMAB [Suspect]
     Active Substance: NIVOLUMAB
     Route: 065
     Dates: start: 20210713, end: 20210713
  10. NIVOLUMAB [Suspect]
     Active Substance: NIVOLUMAB
     Route: 065
     Dates: start: 20210817, end: 20210817
  11. NIVOLUMAB [Suspect]
     Active Substance: NIVOLUMAB
     Route: 065
     Dates: start: 20210914, end: 20210914
  12. NIVOLUMAB [Suspect]
     Active Substance: NIVOLUMAB
     Route: 065
     Dates: start: 20211012, end: 20211012
  13. NIVOLUMAB [Suspect]
     Active Substance: NIVOLUMAB
     Route: 065
     Dates: start: 20211109, end: 20211109
  14. NIVOLUMAB [Suspect]
     Active Substance: NIVOLUMAB
     Route: 065
     Dates: start: 20211214, end: 20211214
  15. NIVOLUMAB [Suspect]
     Active Substance: NIVOLUMAB
     Route: 065
     Dates: start: 20220111, end: 20220111

REACTIONS (4)
  - Dermatitis [Recovered/Resolved]
  - Pyrexia [Recovered/Resolved]
  - Pruritus [Recovered/Resolved]
  - Uveitis [Recovered/Resolved]

NARRATIVE: CASE EVENT DATE: 20210413
